FAERS Safety Report 8175769-3 (Version None)
Quarter: 2012Q1

REPORT INFORMATION
  Report Type: 
  Country: None (occurrence: None)
  Receive Date: 20120228
  Receipt Date: 20120228
  Transmission Date: 20120608
  Serious: Yes (Other)
  Sender: FDA-Public Use
  Company Number: None

PATIENT
  Sex: Male
  Weight: 58.2 kg

DRUGS (1)
  1. DEPAKOTE [Suspect]
     Indication: CONVULSION
     Dosage: III QAM II QPM III QHS PO
     Route: 048
     Dates: start: 20090410

REACTIONS (2)
  - TREATMENT FAILURE [None]
  - PRODUCT SUBSTITUTION ISSUE [None]
